FAERS Safety Report 5418177-8 (Version None)
Quarter: 2007Q3

REPORT INFORMATION
  Report Type: 
  Country: None (occurrence: None)
  Receive Date: 20070817
  Receipt Date: 20070813
  Transmission Date: 20080115
  Serious: Yes (Hospitalization)
  Sender: FDA-Public Use
  Company Number: FR-ASTRAZENECA-2007CG01191

PATIENT
  Age: 88 Year
  Sex: Male

DRUGS (3)
  1. ZOLADEX [Suspect]
     Indication: PROSTATE CANCER
     Route: 058
     Dates: start: 20070620
  2. TAREG [Concomitant]
     Indication: HYPERTENSION
  3. ISKEDYL [Concomitant]

REACTIONS (1)
  - ATRIAL FIBRILLATION [None]
